FAERS Safety Report 24917815 (Version 4)
Quarter: 2025Q3

REPORT INFORMATION
  Report Type: Spontaneous
  Country: JP (occurrence: JP)
  Receive Date: 20250203
  Receipt Date: 20250810
  Transmission Date: 20251021
  Serious: Yes (Other)
  Sender: ALEXION PHARMACEUTICALS
  Company Number: JP-ASTRAZENECA-250009353_012620_P_1

PATIENT
  Age: 60 Year
  Sex: Female

DRUGS (4)
  1. TRUQAP [Suspect]
     Active Substance: CAPIVASERTIB
     Indication: Breast cancer
     Dosage: FOUR CONSECUTIVE DAYS ON TREATMENT FOLLOWED BY THREE DAYS OFF TREATMENT
     Dates: start: 20241113, end: 20250203
  2. TRUQAP [Suspect]
     Active Substance: CAPIVASERTIB
  3. FULVESTRANT [Suspect]
     Active Substance: FULVESTRANT
     Indication: Breast cancer
  4. FULVESTRANT [Suspect]
     Active Substance: FULVESTRANT

REACTIONS (3)
  - Erythema multiforme [Recovered/Resolved]
  - Plasma cell myeloma [Not Recovered/Not Resolved]
  - Stomatitis [Not Recovered/Not Resolved]
